FAERS Safety Report 18346542 (Version 1)
Quarter: 2020Q4

REPORT INFORMATION
  Report Type: Spontaneous
  Country: US (occurrence: US)
  Receive Date: 20201005
  Receipt Date: 20201005
  Transmission Date: 20210114
  Serious: Yes (Other)
  Sender: FDA-Public Use
  Company Number: US-SUNOVION-2020SUN002869

PATIENT
  Sex: Female

DRUGS (1)
  1. LATUDA [Suspect]
     Active Substance: LURASIDONE HYDROCHLORIDE
     Indication: BIPOLAR DISORDER
     Dosage: 80 MG (40MG, TWO TABLETS A DAY)
     Route: 048

REACTIONS (3)
  - Brain neoplasm [Unknown]
  - Post procedural complication [Unknown]
  - Illness [Not Recovered/Not Resolved]
